FAERS Safety Report 4425157-8 (Version None)
Quarter: 2004Q3

REPORT INFORMATION
  Report Type: 
  Country: None (occurrence: None)
  Receive Date: 20040813
  Receipt Date: 20010213
  Transmission Date: 20050211
  Serious: Yes (Life-Threatening, Hospitalization, Other)
  Sender: FDA-Public Use
  Company Number: PHBS2001CA01813

PATIENT
  Age: 45 Year
  Sex: Female
  Weight: 102 kg

DRUGS (3)
  1. CLOZARIL [Suspect]
     Dosage: 500  MG/D
     Route: 048
     Dates: start: 19970626
  2. HALDOL [Concomitant]
     Dosage: 1 MG, QHS
     Route: 048
  3. QUETIAPINE [Concomitant]
     Dosage: 400 MG/D
     Dates: start: 20001128, end: 20010414

REACTIONS (5)
  - AGRANULOCYTOSIS [None]
  - CELLULITIS [None]
  - LEUKOPENIA [None]
  - NEUTROPENIA [None]
  - PYREXIA [None]
